FAERS Safety Report 4481295-5 (Version None)
Quarter: 2004Q4

REPORT INFORMATION
  Report Type: 
  Country: None (occurrence: None)
  Receive Date: 20040923
  Receipt Date: 20040707
  Transmission Date: 20050328
  Serious: No
  Sender: FDA-Public Use
  Company Number: USA030639164

PATIENT
  Age: 79 Year
  Sex: Female
  Weight: 60 kg

DRUGS (22)
  1. FORTEO [Suspect]
     Indication: OSTEOPOROSIS
     Dosage: 20 UG DAY
     Dates: start: 20030603
  2. LORAZEPAM [Concomitant]
  3. CODEINE [Concomitant]
  4. OS-CAL [Concomitant]
  5. VITAMIN D [Concomitant]
  6. MULTIVITAMIN [Concomitant]
  7. TAGAMET [Concomitant]
  8. IBUPROFEN [Concomitant]
  9. QUININE [Concomitant]
  10. ROBAXIN [Concomitant]
  11. ASPIRIN [Concomitant]
  12. GLUCOSAMINE W/CHONDROITIN [Concomitant]
  13. PRENATAL VITAMINS [Concomitant]
  14. CALCIUM CARBONATE [Concomitant]
  15. FOLIC ACID [Concomitant]
  16. LEVOXYL [Concomitant]
  17. NASOCORT (BUDESONIDE) [Concomitant]
  18. BIOTIN [Concomitant]
  19. VITAMIN E [Concomitant]
  20. VITAMIN C [Concomitant]
  21. MULTIVITAMIN [Concomitant]
  22. BUTALBITAL, ACETAMINOPHEN, CAFFEINE [Concomitant]

REACTIONS (15)
  - ARTHRALGIA [None]
  - ASTHENIA [None]
  - BALANCE DISORDER [None]
  - BREAST PAIN [None]
  - DISCOMFORT [None]
  - FALL [None]
  - FATIGUE [None]
  - FEELING ABNORMAL [None]
  - HOT FLUSH [None]
  - HYPERHIDROSIS [None]
  - INJECTION SITE ERYTHEMA [None]
  - INJECTION SITE HAEMORRHAGE [None]
  - LIGAMENT SPRAIN [None]
  - NAUSEA [None]
  - SKIN LACERATION [None]
